FAERS Safety Report 25723024 (Version 1)
Quarter: 2025Q3

REPORT INFORMATION
  Report Type: Report from Study
  Country: CA (occurrence: CA)
  Receive Date: 20250825
  Receipt Date: 20250825
  Transmission Date: 20251021
  Serious: Yes (Hospitalization)
  Sender: PFIZER
  Company Number: CA-PFIZER INC-202500167955

PATIENT
  Age: 61 Year
  Sex: Female

DRUGS (25)
  1. RITUXIMAB [Suspect]
     Active Substance: RITUXIMAB
     Indication: Rheumatoid arthritis
     Route: 042
  2. ACETAMINOPHEN [Concomitant]
     Active Substance: ACETAMINOPHEN
     Indication: Premedication
     Route: 048
  3. ASPIRIN [Concomitant]
     Active Substance: ASPIRIN
  4. ALENDRONATE SODIUM [Concomitant]
     Active Substance: ALENDRONATE SODIUM
  5. AMLODIPINE [Concomitant]
     Active Substance: AMLODIPINE BESYLATE
  6. ARAVA [Concomitant]
     Active Substance: LEFLUNOMIDE
  7. BUDESONIDE/FORMOTEROL FUMARATE/GLYCOPYRRONIUM [Concomitant]
  8. CANDESARTAN [Concomitant]
     Active Substance: CANDESARTAN
  9. CYCLOBENZAPRINE [Concomitant]
     Active Substance: CYCLOBENZAPRINE
  10. DIPHENHYDRAMINE [Concomitant]
     Active Substance: DIPHENHYDRAMINE
     Indication: Premedication
     Route: 048
  11. DULOXETINE HYDROCHLORIDE [Concomitant]
     Active Substance: DULOXETINE HYDROCHLORIDE
  12. EZETIMIBE [Concomitant]
     Active Substance: EZETIMIBE
  13. FOLIC ACID [Concomitant]
     Active Substance: FOLIC ACID
  14. HYDROMORPHONE [Concomitant]
     Active Substance: HYDROMORPHONE
  15. HYDROXYCHLOROQUINE [Concomitant]
     Active Substance: HYDROXYCHLOROQUINE
  16. HYDROXYCHLOROQUINE SULFATE [Concomitant]
     Active Substance: HYDROXYCHLOROQUINE SULFATE
  17. METHYLPREDNISOLONE [Concomitant]
     Active Substance: METHYLPREDNISOLONE
     Indication: Premedication
     Route: 042
  18. OMEPRAZOLE [Concomitant]
     Active Substance: OMEPRAZOLE
  19. PANTOPRAZOLE [Concomitant]
     Active Substance: PANTOPRAZOLE
  20. PREGABALIN [Concomitant]
     Active Substance: PREGABALIN
  21. ROSUVASTATIN [Concomitant]
     Active Substance: ROSUVASTATIN
  22. SPIRONOLACTONE [Concomitant]
     Active Substance: SPIRONOLACTONE
  23. TRAMADOL [Concomitant]
     Active Substance: TRAMADOL
  24. TYLENOL EXTRA STRENGTH [Concomitant]
     Active Substance: ACETAMINOPHEN
  25. VITAMIN D3 [Concomitant]
     Active Substance: CHOLECALCIFEROL

REACTIONS (12)
  - Arteriosclerosis [Recovered/Resolved]
  - Diarrhoea [Recovered/Resolved]
  - Dizziness [Recovered/Resolved]
  - Gait disturbance [Recovered/Resolved]
  - Infusion related reaction [Recovered/Resolved]
  - Interstitial lung disease [Recovered/Resolved]
  - Lacrimation increased [Recovered/Resolved]
  - Pancreatitis [Recovered/Resolved]
  - Rash [Recovered/Resolved]
  - Seasonal allergy [Recovered/Resolved]
  - Sneezing [Recovered/Resolved]
  - Weight decreased [Recovered/Resolved]
